FAERS Safety Report 4355413-3 (Version None)
Quarter: 2004Q2

REPORT INFORMATION
  Report Type: 
  Country: None (occurrence: None)
  Receive Date: 20040505
  Receipt Date: 20040426
  Transmission Date: 20050107
  Serious: Yes (Hospitalization)
  Sender: FDA-Public Use
  Company Number: 2004210591FR

PATIENT
  Age: 90 Year
  Sex: Female

DRUGS (8)
  1. ALDACTONE [Suspect]
     Dosage: 25 MG, DAILY, ORAL
     Route: 048
     Dates: end: 20040201
  2. ZESTRIL [Suspect]
     Dosage: 5 MG, DAILY, ORAL
     Route: 048
     Dates: end: 20040201
  3. PHYSIOTENS ^SOLVAY^ (MOXONIDINE) [Suspect]
     Dosage: 1 DF, DAILY, UNK
     Dates: end: 20040201
  4. LASIX [Suspect]
     Dosage: 40 MG, DAILY, UNK; 20 MG DAILY, UNK
     Dates: end: 20040201
  5. ATORVASTATIN CALCIUM [Concomitant]
  6. TRINITRINE [Concomitant]
  7. LEVOTHYROXINE SODIUM [Concomitant]
  8. UMULINE (INSULIN HUMAN ZINC SUSPENSION) [Concomitant]

REACTIONS (7)
  - AMNESIA [None]
  - AORTIC VALVE STENOSIS [None]
  - CARDIAC MURMUR [None]
  - CONTUSION [None]
  - HYPOTENSION [None]
  - LOSS OF CONSCIOUSNESS [None]
  - OVERDOSE [None]
